FAERS Safety Report 5194272-6 (Version None)
Quarter: 2006Q4

REPORT INFORMATION
  Report Type: 
  Country: None (occurrence: None)
  Receive Date: 20061228
  Receipt Date: 20060113
  Transmission Date: 20070319
  Serious: Yes (Hospitalization)
  Sender: FDA-Public Use
  Company Number: DE-ABBOTT-06P-062-0322312-00

PATIENT
  Sex: Female
  Weight: 78 kg

DRUGS (7)
  1. HUMIRA [Suspect]
     Indication: RHEUMATOID ARTHRITIS
     Route: 058
     Dates: start: 20040112
  2. HUMIRA [Concomitant]
     Route: 058
     Dates: start: 20031105
  3. LEFLUNOMIDE [Concomitant]
     Indication: RHEUMATOID ARTHRITIS
     Dates: start: 20040601
  4. LEKOVIT CA [Concomitant]
     Indication: OSTEOPOROSIS
     Dates: start: 20050914
  5. ALENDRONATE SODIUM [Concomitant]
     Indication: OSTEOPOROSIS
     Dates: start: 20010101
  6. BISOPROLOL FUMARATE [Concomitant]
     Indication: HYPERTENSION
     Dates: start: 20030930
  7. LEVOTHYROXINE SODIUM [Concomitant]
     Indication: HYPOTHYROIDISM
     Dates: start: 20020401

REACTIONS (2)
  - SUDDEN HEARING LOSS [None]
  - TINNITUS [None]
